FAERS Safety Report 15459906 (Version 1)
Quarter: 2018Q4

REPORT INFORMATION
  Report Type: Spontaneous
  Country: GB (occurrence: GB)
  Receive Date: 20181003
  Receipt Date: 20181003
  Transmission Date: 20190204
  Serious: Yes (Other)
  Sender: FDA-Public Use
  Company Number: GB-TEVA-2018-GB-960042

PATIENT
  Age: 68 Year
  Sex: Female
  Weight: 54 kg

DRUGS (12)
  1. MARIOSEA XL PROLONGED RELEASE [Concomitant]
     Active Substance: TOLTERODINE TARTRATE
     Dosage: 1 DOSAGE FORMS DAILY;
     Dates: start: 20180123
  2. UNIROID [Concomitant]
     Dosage: 2 DOSAGE FORMS DAILY;
     Dates: start: 20120820
  3. ESTRADIOL. [Concomitant]
     Active Substance: ESTRADIOL
     Dosage: AS DIRECTED
     Dates: start: 20020104
  4. AMITRIPTYLINE HYDROCHLORIDE. [Concomitant]
     Active Substance: AMITRIPTYLINE HYDROCHLORIDE
     Dosage: AT NIGHT
     Dates: start: 20180817
  5. DEPO-MEDRONE [Concomitant]
     Active Substance: METHYLPREDNISOLONE
     Dosage: USE AS DIRECTED
     Dates: start: 20180817, end: 20180818
  6. FYBOGEL [Concomitant]
     Active Substance: PLANTAGO OVATA SEED
     Dosage: AS DIRECTED
     Dates: start: 20100628
  7. ZAPAIN [Concomitant]
     Active Substance: ACETAMINOPHEN\CODEINE PHOSPHATE
     Dosage: ONE OR TWO TO BE TAKEN FOUR TIMES A DAY
     Dates: start: 20170707
  8. TRAMADOL. [Suspect]
     Active Substance: TRAMADOL
     Indication: ARTHRALGIA
     Dosage: 3 DOSAGE FORMS DAILY;
     Route: 048
     Dates: start: 20180817, end: 20180827
  9. OMEPRAZOLE. [Concomitant]
     Active Substance: OMEPRAZOLE
     Dosage: 1 DOSAGE FORMS DAILY;
     Dates: start: 20161128
  10. DICLOFENAC POTASSIUM. [Concomitant]
     Active Substance: DICLOFENAC POTASSIUM
     Dosage: 1 DOSAGE FORMS DAILY;
     Dates: start: 20130904
  11. BETAMETHASONE VALERATE. [Concomitant]
     Active Substance: BETAMETHASONE VALERATE
     Dates: start: 20120820
  12. BETNOVATE [Concomitant]
     Active Substance: BETAMETHASONE
     Dosage: 2 DOSAGE FORMS DAILY; APPLY
     Dates: start: 20120820

REACTIONS (2)
  - Dizziness [Recovered/Resolved]
  - Loss of consciousness [Recovered/Resolved]

NARRATIVE: CASE EVENT DATE: 20180817
